FAERS Safety Report 6590041-0 (Version None)
Quarter: 2010Q1

REPORT INFORMATION
  Report Type: 
  Country: None (occurrence: None)
  Receive Date: 20100219
  Receipt Date: 20100210
  Transmission Date: 20100710
  Serious: Yes (Other)
  Sender: FDA-Public Use
  Company Number: PHBS2007TR11994

PATIENT
  Sex: Male
  Weight: 18 kg

DRUGS (2)
  1. EXJADE [Suspect]
     Indication: THALASSAEMIA BETA
     Dosage: 375 MG/DAY
     Route: 048
     Dates: start: 20070623
  2. EXJADE [Suspect]
     Dates: start: 20070713

REACTIONS (4)
  - BLINDNESS TRANSIENT [None]
  - DEAFNESS [None]
  - HEAD INJURY [None]
  - REFRACTION DISORDER [None]
